FAERS Safety Report 7494324-1 (Version None)
Quarter: 2011Q2

REPORT INFORMATION
  Report Type: 
  Country: None (occurrence: None)
  Receive Date: 20110520
  Receipt Date: 20110517
  Transmission Date: 20111010
  Serious: Yes (Death)
  Sender: FDA-Public Use
  Company Number: US-JNJFOC-20110207668

PATIENT
  Age: 31 Year
  Sex: Female
  Weight: 115.67 kg

DRUGS (6)
  1. OXYCODONE HCL [Suspect]
     Indication: PRODUCT USED FOR UNKNOWN INDICATION
  2. BUTALBITAL [Suspect]
     Indication: PRODUCT USED FOR UNKNOWN INDICATION
  3. SOMA [Suspect]
     Indication: PRODUCT USED FOR UNKNOWN INDICATION
  4. MEPROBAMATE [Suspect]
     Indication: PRODUCT USED FOR UNKNOWN INDICATION
  5. CYCLOBENZAPRINE HYDROCHLORIDE [Suspect]
     Indication: PRODUCT USED FOR UNKNOWN INDICATION
  6. OXYMORPHONE [Suspect]
     Indication: PRODUCT USED FOR UNKNOWN INDICATION

REACTIONS (4)
  - TOXICITY TO VARIOUS AGENTS [None]
  - VOMITING [None]
  - ASPIRATION [None]
  - CIRCULATORY COLLAPSE [None]
